FAERS Safety Report 8206569-3 (Version None)
Quarter: 2012Q1

REPORT INFORMATION
  Report Type: 
  Country: None (occurrence: None)
  Receive Date: 20120313
  Receipt Date: 20120305
  Transmission Date: 20120608
  Serious: Yes (Other)
  Sender: FDA-Public Use
  Company Number: CN-ASTRAZENECA-2012SE15324

PATIENT
  Sex: Female

DRUGS (3)
  1. DEZOCINE [Suspect]
     Indication: ANAESTHESIA
     Dosage: 20 UG/KG WITHIN 30 SECONDS
     Route: 042
  2. PROPOFOL [Suspect]
     Indication: ANAESTHESIA
     Dosage: 1.5-2.5 MG/KG WITH RATE OF 0.5 ML/SECOND
     Route: 042
  3. LACTATED RINGER'S [Suspect]
     Indication: ANAESTHESIA
     Dosage: 60 DROPS/MIN
     Route: 042

REACTIONS (1)
  - RESPIRATORY DEPRESSION [None]
